FAERS Safety Report 9406371 (Version 1)
Quarter: 2013Q3

REPORT INFORMATION
  Report Type: Spontaneous
  Country: AU (occurrence: AU)
  Receive Date: 20130718
  Receipt Date: 20130718
  Transmission Date: 20140515
  Serious: Yes (Hospitalization)
  Sender: FDA-Public Use
  Company Number: AU-009507513-1307AUS007887

PATIENT
  Age: 4 Year
  Sex: Male

DRUGS (1)
  1. LORATADINE [Suspect]
     Dosage: 20 MG, ONCE
     Route: 048
     Dates: start: 20081108, end: 20081108

REACTIONS (1)
  - Agitation [Unknown]
